FAERS Safety Report 13006455 (Version 4)
Quarter: 2018Q4

REPORT INFORMATION
  Report Type: Spontaneous
  Country: FR (occurrence: FR)
  Receive Date: 20161207
  Receipt Date: 20181203
  Transmission Date: 20190204
  Serious: Yes (Life-Threatening)
  Sender: FDA-Public Use
  Company Number: FR-JNJFOC-20161204130

PATIENT
  Age: 79 Year
  Sex: Female
  Weight: 73.4 kg

DRUGS (5)
  1. HALDOL [Suspect]
     Active Substance: HALOPERIDOL
     Indication: AGITATION
     Dosage: 5MG/ML
     Route: 042
     Dates: start: 20161007, end: 20161007
  2. APROVEL [Concomitant]
     Active Substance: IRBESARTAN
     Route: 065
  3. STALEVO [Suspect]
     Active Substance: CARBIDOPA\ENTACAPONE\LEVODOPA
     Indication: PARKINSON^S DISEASE
     Dosage: 100MG/25MG/200MG
     Route: 065
     Dates: start: 2015, end: 20161007
  4. OMEPRAZOLE. [Concomitant]
     Active Substance: OMEPRAZOLE
     Route: 065
  5. STALEVO [Suspect]
     Active Substance: CARBIDOPA\ENTACAPONE\LEVODOPA
     Indication: PARKINSON^S DISEASE
     Route: 065

REACTIONS (10)
  - Coma [Recovered/Resolved]
  - Demyelination [Recovered/Resolved]
  - Drug ineffective [Unknown]
  - Product use issue [Unknown]
  - Pneumonia aspiration [Recovered/Resolved]
  - Sepsis [Recovered/Resolved]
  - Vomiting [Recovered/Resolved]
  - Respiratory distress [Recovered/Resolved]
  - General physical health deterioration [Recovered/Resolved]
  - Off label use [Unknown]

NARRATIVE: CASE EVENT DATE: 201610
